FAERS Safety Report 5624086-1 (Version None)
Quarter: 2008Q1

REPORT INFORMATION
  Report Type: 
  Country: None (occurrence: None)
  Receive Date: 20080213
  Receipt Date: 20070626
  Transmission Date: 20080703
  Serious: No
  Sender: FDA-Public Use
  Company Number: US-KINGPHARMUSA00001-K200700831

PATIENT

DRUGS (10)
  1. EPIPEN [Suspect]
     Indication: ALLERGY TO ARTHROPOD STING
     Dosage: .3 MG, SINGLE
     Dates: start: 20070626, end: 20070626
  2. ANTIHYPERTENSIVES [Concomitant]
     Indication: HYPERTENSION
     Route: 048
  3. SINGULAIR [Concomitant]
     Indication: ASTHMA
     Route: 048
  4. HYDROCHLOROTHIAZIDE [Concomitant]
     Indication: HYPERTENSION
     Route: 048
  5. PRILOSEC /00661201/ [Concomitant]
     Route: 048
  6. FLOVENT [Concomitant]
     Indication: ASTHMA
  7. DOXAZOSIN MESYLATE [Concomitant]
     Indication: HYPERTENSION
     Route: 048
  8. VITAMIN D  /00107901/ [Concomitant]
  9. SANCTURA [Concomitant]
  10. GABAPENTIN [Concomitant]
     Indication: BACK DISORDER
     Route: 048

REACTIONS (1)
  - ACCIDENTAL NEEDLE STICK [None]
